FAERS Safety Report 22931475 (Version 4)
Quarter: 2023Q4

REPORT INFORMATION
  Report Type: Spontaneous
  Country: PL (occurrence: PL)
  Receive Date: 20230911
  Receipt Date: 20231204
  Transmission Date: 20240110
  Serious: Yes (Hospitalization)
  Sender: FDA-Public Use
  Company Number: PL-ROCHE-3412869

PATIENT
  Age: 66 Year
  Sex: Female

DRUGS (26)
  1. DOXORUBICIN HYDROCHLORIDE [Suspect]
     Active Substance: DOXORUBICIN HYDROCHLORIDE
     Indication: Diffuse large B-cell lymphoma
     Dosage: START DATE OF MOST RECENT DOSE OF STUDY DRUG PRIOR TO SAE 10-AUG-2023
     Route: 042
  2. DOXORUBICIN HYDROCHLORIDE [Suspect]
     Active Substance: DOXORUBICIN HYDROCHLORIDE
     Dosage: 74.44 MG/M2, EVERY 3 WEEKS
     Route: 042
     Dates: start: 20230810
  3. RITUXIMAB [Suspect]
     Active Substance: RITUXIMAB
     Indication: Diffuse large B-cell lymphoma
     Dosage: 558.29 MG/M2, EVERY 3 WEEKS
     Route: 042
     Dates: start: 20230810
  4. RITUXIMAB [Suspect]
     Active Substance: RITUXIMAB
     Dosage: START DATE OF MOST RECENT DOSE OF STUDY DRUGPRIOR TO SAE 10-AUG-2023
     Route: 042
  5. METHYLPREDNISOLONE [Suspect]
     Active Substance: METHYLPREDNISOLONE
     Indication: Diffuse large B-cell lymphoma
     Route: 065
  6. PREDNISOLONE [Suspect]
     Active Substance: PREDNISOLONE
     Indication: Diffuse large B-cell lymphoma
     Dosage: 74.44 MG;EVERY 3 WEEKS; DOSE LAST STUDY DRUG ADMIN PRIOR AE
     Route: 042
  7. PREDNISONE [Suspect]
     Active Substance: PREDNISONE
     Indication: Diffuse large B-cell lymphoma
     Dosage: START DATE AND END DATE  OF MOST RECENT DOSE OF STUDY DRUG PRIOR TO SAE 14-AUG-2023
     Route: 042
     Dates: start: 20230810
  8. PREDNISONE [Suspect]
     Active Substance: PREDNISONE
     Dosage: UNK
     Dates: start: 20230814
  9. CYCLOPHOSPHAMIDE [Suspect]
     Active Substance: CYCLOPHOSPHAMIDE
     Indication: Diffuse large B-cell lymphoma
     Dosage: 1116.57 MG/M2, EVERY 3 WEEKS
     Route: 042
     Dates: start: 20230810
  10. CYCLOPHOSPHAMIDE [Suspect]
     Active Substance: CYCLOPHOSPHAMIDE
     Dosage: START DATE OF MOST RECENT DOSE OF STUDY DRUG PRIOR TO SAE 10-AUG-2023
     Route: 042
  11. VINCRISTINE SULFATE [Suspect]
     Active Substance: VINCRISTINE SULFATE
     Indication: Diffuse large B-cell lymphoma
     Dosage: START DATE AND END DATE  OF MOST RECENT DOSE OF STUDY DRUG PRIOR TO SAE 10-AUG-2023
     Route: 042
     Dates: start: 20230810
  12. MEDICAL FOOD [Concomitant]
     Active Substance: MEDICAL FOOD
     Indication: Gastrointestinal tube insertion
     Dosage: 1000 ML, 1X/DAY
     Dates: start: 20230725
  13. CLARITHROMYCIN [Concomitant]
     Active Substance: CLARITHROMYCIN
     Indication: Chronic gastritis
     Dosage: 500 MG, 2X/DAY
     Dates: start: 20230801
  14. ROSUVASTATIN [Concomitant]
     Active Substance: ROSUVASTATIN
     Indication: Hypertriglyceridaemia
     Dosage: 5 MG
     Dates: start: 20230802
  15. SODIUM CHLORIDE [Concomitant]
     Active Substance: SODIUM CHLORIDE
     Dosage: 1000 ML
     Dates: start: 20230729
  16. AMLODIPINE BESYLATE [Concomitant]
     Active Substance: AMLODIPINE BESYLATE
     Indication: Hypertension
     Dosage: 5 MG, 1X/DAY
     Dates: start: 20230802
  17. METRONIDAZOLE [Concomitant]
     Active Substance: METRONIDAZOLE
     Indication: Chronic gastritis
     Dosage: 500 MG
     Dates: start: 20230801
  18. CONTROLOC [Concomitant]
     Active Substance: PANTOPRAZOLE SODIUM
     Indication: Chronic gastritis
     Dosage: 40 MG, 1X/DAY
     Dates: start: 202304
  19. PREDNISONE [Concomitant]
     Active Substance: PREDNISONE
     Dosage: UNK
  20. BUPRENORPHINE [Concomitant]
     Active Substance: BUPRENORPHINE
     Dosage: UNK
  21. PERFALGAN [Concomitant]
     Active Substance: ACETAMINOPHEN
     Indication: Abdominal pain
     Dosage: UNK
  22. AMOXICILLIN [Concomitant]
     Active Substance: AMOXICILLIN
     Indication: Chronic gastritis
     Dosage: 1000 MG
     Dates: start: 20230801
  23. TELMISARTAN [Concomitant]
     Active Substance: TELMISARTAN
     Indication: Hypertension
     Dosage: 80 MG
     Dates: start: 20230802
  24. METFORMIN HYDROCHLORIDE [Concomitant]
     Active Substance: METFORMIN HYDROCHLORIDE
     Indication: Type 2 diabetes mellitus
     Dosage: UNK
  25. GLIMEPIRIDE [Concomitant]
     Active Substance: GLIMEPIRIDE
     Indication: Type 2 diabetes mellitus
     Dosage: UNK
     Dates: start: 2015
  26. INSULINA ACTRAPID [Concomitant]
     Indication: Type 2 diabetes mellitus
     Dosage: UNK

REACTIONS (2)
  - Wound abscess [Not Recovered/Not Resolved]
  - Wound infection staphylococcal [Not Recovered/Not Resolved]

NARRATIVE: CASE EVENT DATE: 20230825
